FAERS Safety Report 18050176 (Version 1)
Quarter: 2020Q3

REPORT INFORMATION
  Report Type: Spontaneous
  Country: US (occurrence: US)
  Receive Date: 20200721
  Receipt Date: 20200721
  Transmission Date: 20201103
  Serious: No
  Sender: FDA-Public Use
  Company Number: US-UNITED THERAPEUTICS-UNT-2020-008880

PATIENT
  Sex: Female
  Weight: 49.98 kg

DRUGS (3)
  1. REMODULIN [Suspect]
     Active Substance: TREPROSTINIL
     Dosage: 0.018 ?G/KG, CONTINUING
     Route: 041
  2. REMODULIN [Suspect]
     Active Substance: TREPROSTINIL
     Indication: PULMONARY ARTERIAL HYPERTENSION
     Dosage: UNK, CONTINUING
     Route: 041
     Dates: start: 20200608
  3. REMODULIN [Suspect]
     Active Substance: TREPROSTINIL
     Dosage: 0.010 ?G/KG, CONTINUING
     Route: 041

REACTIONS (6)
  - Nausea [Unknown]
  - Catheter site pain [Unknown]
  - Hiccups [Unknown]
  - Dizziness [Unknown]
  - Pain in jaw [Recovered/Resolved]
  - Catheter site haemorrhage [Recovered/Resolved]

NARRATIVE: CASE EVENT DATE: 2020
